FAERS Safety Report 7441365-6 (Version None)
Quarter: 2011Q2

REPORT INFORMATION
  Report Type: 
  Country: None (occurrence: None)
  Receive Date: 20110428
  Receipt Date: 20110422
  Transmission Date: 20111010
  Serious: Yes (Death)
  Sender: FDA-Public Use
  Company Number: JP-ELI_LILLY_AND_COMPANY-JP201104003514

PATIENT
  Sex: Female
  Weight: 68.3 kg

DRUGS (35)
  1. VICTOZA [Concomitant]
     Dosage: 0.9 MG, UNK
     Dates: start: 20101124
  2. AMARYL [Concomitant]
     Dosage: 0.5 MG, UNK
     Dates: start: 20101124
  3. CRESTOR [Concomitant]
     Dosage: 2.5 MG, UNK
     Route: 048
  4. MAGNESIUM OXIDE [Concomitant]
     Dosage: 2 G, UNK
     Route: 048
  5. SEIBULE [Concomitant]
     Dosage: 150 MG, UNK
  6. KARY UNI                           /00528801/ [Concomitant]
     Route: 047
  7. BYETTA [Suspect]
     Indication: DIABETES MELLITUS
     Dosage: 5 UG, BID
     Route: 058
     Dates: start: 20110331
  8. NORVASC [Concomitant]
     Dosage: 5 MG, UNK
     Route: 048
  9. DIART [Concomitant]
     Dosage: 60 MG, UNK
     Route: 048
  10. KETOPROFEN [Concomitant]
     Dosage: UNK
  11. ALDACTONE [Concomitant]
     Dosage: 25 MG, UNK
     Route: 048
  12. PANTOSIN [Concomitant]
     Dosage: 0.6 G, UNK
     Route: 048
  13. TAKEPRON [Concomitant]
     Dosage: 15 MG, UNK
     Route: 048
  14. LAXOBERON [Concomitant]
     Indication: CONSTIPATION
     Dosage: 20 UNK, UNK
     Route: 048
  15. ASPIRIN [Concomitant]
     Dosage: 1 DF, UNK
     Route: 048
  16. IRBETAN [Concomitant]
     Dosage: 100 MG, UNK
  17. PURSENNID [Concomitant]
     Dosage: 3 DF, UNK
     Route: 048
  18. VOLTAREN                                /SCH/ [Concomitant]
     Dosage: 1 DF, UNK
     Route: 048
  19. BLOPRESS [Concomitant]
     Dosage: 12 MG, UNK
     Route: 048
  20. METFORMIN HCL [Concomitant]
     Dosage: 500 MG, UNK
     Route: 048
  21. ARTIST [Concomitant]
     Dosage: 1.25 MG, UNK
  22. ACTOS [Concomitant]
     Dosage: 15 MG, UNK
  23. ADONA [Concomitant]
  24. AMARYL [Concomitant]
     Dosage: 1 MG, UNK
     Dates: start: 20101105
  25. SENNOSIDE [Concomitant]
     Indication: CONSTIPATION
     Dosage: 4 DF, UNK
     Route: 048
  26. NICORANTA [Concomitant]
     Dosage: 3 DF, UNK
     Route: 048
  27. MYONAL [Concomitant]
     Dosage: 1 DF, UNK
     Route: 048
  28. CARNACULIN [Concomitant]
  29. VICTOZA [Concomitant]
     Indication: DIABETES MELLITUS
     Dosage: UNK
     Dates: start: 20101105
  30. AMARYL [Concomitant]
     Dosage: 1 MG, UNK
     Dates: start: 20110109
  31. METFORMIN [Concomitant]
     Dosage: 500 MG, UNK
     Dates: start: 20110109
  32. SELBEX [Concomitant]
     Dosage: 1 DF, UNK
     Route: 048
  33. SITAGLIPTIN PHOSPHATE [Concomitant]
     Dosage: 50 MG, UNK
     Route: 048
  34. ZETIA [Concomitant]
     Dosage: 10 MG, UNK
     Route: 048
  35. LENDORMIN [Concomitant]
     Dosage: 0.25 MG, UNK
     Route: 048

REACTIONS (1)
  - MYOCARDIAL ISCHAEMIA [None]
